FAERS Safety Report 12438395 (Version 1)
Quarter: 2016Q2

REPORT INFORMATION
  Report Type: Spontaneous
  Country: US (occurrence: US)
  Receive Date: 20160606
  Receipt Date: 20160606
  Transmission Date: 20160815
  Serious: No
  Sender: FDA-Public Use
  Company Number: US-DSJP-DSU-2015-128672

PATIENT
  Age: 73 Year
  Sex: Female
  Weight: 90.7 kg

DRUGS (5)
  1. BENICAR [Suspect]
     Active Substance: OLMESARTAN MEDOXOMIL
     Dosage: 20 MG, QD
     Dates: start: 20060724, end: 20141021
  2. ATENOLOL. [Concomitant]
     Active Substance: ATENOLOL
     Indication: PRODUCT USED FOR UNKNOWN INDICATION
     Dosage: 25 MG, QD
     Dates: start: 2005
  3. SIMVASTATIN. [Concomitant]
     Active Substance: SIMVASTATIN
     Indication: PRODUCT USED FOR UNKNOWN INDICATION
     Dosage: 10 MG, QD
     Dates: start: 2009
  4. ASPIRIN                            /00002701/ [Concomitant]
     Active Substance: ASPIRIN
     Indication: PRODUCT USED FOR UNKNOWN INDICATION
     Dosage: 81 MG, UNK
  5. BENICAR [Suspect]
     Active Substance: OLMESARTAN MEDOXOMIL
     Indication: HYPERTENSION
     Dosage: UNK
     Dates: start: 2004

REACTIONS (17)
  - Biliary dilatation [Unknown]
  - Hepatic cyst [Unknown]
  - Constipation [Unknown]
  - Cholelithiasis [Unknown]
  - Adenoma benign [Recovered/Resolved]
  - Pancreatic duct dilatation [Unknown]
  - Gastrooesophageal reflux disease [Unknown]
  - Dizziness [Unknown]
  - Malabsorption [Unknown]
  - Liver function test abnormal [Unknown]
  - Dysphagia [Unknown]
  - Gallbladder enlargement [Unknown]
  - Gallbladder polyp [Unknown]
  - Alopecia [Unknown]
  - Diverticulum [Unknown]
  - Ageusia [Unknown]
  - Anal incontinence [Unknown]

NARRATIVE: CASE EVENT DATE: 2009
